APPROVED DRUG PRODUCT: NAPHAZOLINE HYDROCHLORIDE AND PHENIRAMINE MALEATE
Active Ingredient: NAPHAZOLINE HYDROCHLORIDE; PHENIRAMINE MALEATE
Strength: 0.025%;0.3%
Dosage Form/Route: SOLUTION/DROPS;OPHTHALMIC
Application: A202795 | Product #001
Applicant: RISING PHARMA HOLDINGS INC
Approved: Jan 24, 2013 | RLD: No | RS: No | Type: OTC